FAERS Safety Report 6787482-5 (Version None)
Quarter: 2010Q2

REPORT INFORMATION
  Report Type: 
  Country: None (occurrence: None)
  Receive Date: 20100623
  Receipt Date: 20070516
  Transmission Date: 20101027
  Serious: No
  Sender: FDA-Public Use
  Company Number: US-PFIZER INC-2007040192

PATIENT
  Sex: Female

DRUGS (2)
  1. PROVERA [Suspect]
     Dates: end: 20070512
  2. MEDROXYPROGESTERONE ACETATE [Suspect]
     Dates: start: 20070512

REACTIONS (2)
  - MUSCLE SPASMS [None]
  - PAIN [None]
